FAERS Safety Report 6902570-8 (Version None)
Quarter: 2010Q3

REPORT INFORMATION
  Report Type: 
  Country: None (occurrence: None)
  Receive Date: 20100803
  Receipt Date: 20080530
  Transmission Date: 20110219
  Serious: Yes (Other)
  Sender: FDA-Public Use
  Company Number: US-PFIZER INC-2008019199

PATIENT
  Sex: Female
  Weight: 56.7 kg

DRUGS (5)
  1. LYRICA [Suspect]
     Indication: FIBROMYALGIA
     Route: 048
     Dates: start: 20080227, end: 20080227
  2. LYRICA [Suspect]
     Indication: CONVULSION
  3. BENADRYL [Suspect]
  4. KLONOPIN [Concomitant]
     Indication: FIBROMYALGIA
  5. SYNTHROID [Concomitant]

REACTIONS (4)
  - DRUG HYPERSENSITIVITY [None]
  - DYSPNOEA [None]
  - FEELING DRUNK [None]
  - SWELLING FACE [None]
